FAERS Safety Report 7765465-6 (Version None)
Quarter: 2011Q3

REPORT INFORMATION
  Report Type: 
  Country: None (occurrence: None)
  Receive Date: 20110921
  Receipt Date: 20110903
  Transmission Date: 20111222
  Serious: Yes (Hospitalization)
  Sender: FDA-Public Use
  Company Number: JP-ASTRAZENECA-2011SE51239

PATIENT
  Age: 16988 Day
  Sex: Male

DRUGS (10)
  1. CARVEDILOL [Suspect]
     Indication: HYPERTENSION
     Route: 048
     Dates: start: 20110715, end: 20110715
  2. RIZE [Concomitant]
     Indication: ANXIETY DISORDER
     Route: 048
     Dates: start: 20110715, end: 20110822
  3. MAGULAX [Suspect]
     Indication: CONSTIPATION PROPHYLAXIS
     Route: 048
     Dates: start: 20110715, end: 20110824
  4. AZD6140 CODE NOT BROKEN [Suspect]
     Indication: ACUTE CORONARY SYNDROME
     Route: 048
     Dates: start: 20110714, end: 20110824
  5. ASPIRIN [Suspect]
     Route: 048
     Dates: start: 20110715
  6. ASPIRIN [Suspect]
     Indication: ACUTE CORONARY SYNDROME
     Route: 048
     Dates: start: 20110714, end: 20110714
  7. CARVEDILOL [Suspect]
     Route: 048
     Dates: start: 20110716, end: 20110824
  8. LANSOPRAZOLE [Suspect]
     Indication: GASTRITIS PROPHYLAXIS
     Route: 048
     Dates: start: 20110715, end: 20110824
  9. CANDESARTAN CILEXETIL [Suspect]
     Indication: HYPERTENSION
     Dosage: DAILY
     Route: 048
     Dates: start: 20110715, end: 20110824
  10. CLOPIDOGREL [Suspect]
     Indication: ACUTE CORONARY SYNDROME
     Route: 048
     Dates: start: 20110714, end: 20110824

REACTIONS (1)
  - MELAENA [None]
